FAERS Safety Report 23695922 (Version 4)
Quarter: 2024Q2

REPORT INFORMATION
  Report Type: Spontaneous
  Country: US (occurrence: US)
  Receive Date: 20240402
  Receipt Date: 20240519
  Transmission Date: 20240716
  Serious: Yes (Other)
  Sender: FDA-Public Use
  Company Number: US-AUROBINDO-AUR-APL-2024-012780

PATIENT
  Sex: Female

DRUGS (2)
  1. NEBIVOLOL [Suspect]
     Active Substance: NEBIVOLOL
     Indication: Product used for unknown indication
     Dosage: 1 DOSAGE FORM
     Route: 065
  2. BYSTOLIC [Concomitant]
     Active Substance: NEBIVOLOL HYDROCHLORIDE
     Indication: Product used for unknown indication
     Dosage: UNK
     Route: 065

REACTIONS (9)
  - Near death experience [Unknown]
  - Blood pressure abnormal [Unknown]
  - Headache [Unknown]
  - Asthenia [Unknown]
  - Hypersomnia [Unknown]
  - Feeling abnormal [Unknown]
  - Fatigue [Unknown]
  - Product substitution issue [Unknown]
  - Drug ineffective [Unknown]
